FAERS Safety Report 8508807-6 (Version None)
Quarter: 2012Q3

REPORT INFORMATION
  Report Type: 
  Country: None (occurrence: None)
  Receive Date: 20120713
  Receipt Date: 20120703
  Transmission Date: 20120928
  Serious: No
  Sender: FDA-Public Use
  Company Number: US-B.I. PHARMACEUTICALS,INC./RIDGEFIELD-2012-BP-14961BP

PATIENT
  Sex: Female

DRUGS (5)
  1. ASPIRIN [Concomitant]
     Dosage: 81 MG
  2. AGGRENOX [Suspect]
     Indication: CEREBROVASCULAR ACCIDENT PROPHYLAXIS
     Route: 048
     Dates: start: 20100701
  3. CLONIDINE [Concomitant]
     Indication: HYPERTENSION
     Dosage: 2 MG
     Dates: start: 20120101
  4. NIASPAN [Suspect]
     Dosage: 2000 MG
     Dates: end: 20120101
  5. NIASPAN [Suspect]
     Dosage: 1000 MG
     Dates: start: 20120101

REACTIONS (6)
  - PRURITUS GENERALISED [None]
  - LIP SWELLING [None]
  - ASTHENIA [None]
  - TINNITUS [None]
  - RASH GENERALISED [None]
  - SWELLING FACE [None]
